FAERS Safety Report 6842230-5 (Version None)
Quarter: 2010Q3

REPORT INFORMATION
  Report Type: 
  Country: None (occurrence: None)
  Receive Date: 20100714
  Receipt Date: 20070723
  Transmission Date: 20110219
  Serious: No
  Sender: FDA-Public Use
  Company Number: US-PFIZER INC-2007062248

PATIENT
  Sex: Female
  Weight: 48.5 kg

DRUGS (3)
  1. CHANTIX [Suspect]
     Indication: SMOKING CESSATION THERAPY
     Route: 048
     Dates: start: 20070717
  2. FLUOXETINE HCL [Suspect]
  3. ALPRAZOLAM [Concomitant]

REACTIONS (2)
  - ABDOMINAL DISCOMFORT [None]
  - DIARRHOEA [None]
